FAERS Safety Report 4908809-2 (Version None)
Quarter: 2006Q1

REPORT INFORMATION
  Report Type: 
  Country: None (occurrence: None)
  Receive Date: 20060210
  Receipt Date: 20051129
  Transmission Date: 20060701
  Serious: No
  Sender: FDA-Public Use
  Company Number: US-GLAXOSMITHKLINE-A0583853A

PATIENT
  Age: 44 Year
  Sex: Female

DRUGS (3)
  1. PAXIL CR [Suspect]
     Indication: DEPRESSION
     Dosage: 12.5MG PER DAY
     Route: 048
  2. PAROXETINE HCL [Suspect]
     Dosage: 10MG PER DAY
     Route: 048
  3. NAVANE [Concomitant]

REACTIONS (6)
  - ANGER [None]
  - DRUG INEFFECTIVE [None]
  - HEADACHE [None]
  - IRRITABILITY [None]
  - MALAISE [None]
  - PAIN [None]
